FAERS Safety Report 17661386 (Version 1)
Quarter: 2020Q2

REPORT INFORMATION
  Report Type: Spontaneous
  Country: US (occurrence: US)
  Receive Date: 20200413
  Receipt Date: 20200413
  Transmission Date: 20200713
  Serious: Yes (Hospitalization)
  Sender: FDA-Public Use
  Company Number: None

PATIENT
  Age: 60 Year
  Sex: Male
  Weight: 81.9 kg

DRUGS (11)
  1. TEMOZOLOMIDE 250MG [Concomitant]
     Active Substance: TEMOZOLOMIDE
  2. LISINOPRIL 10MG [Concomitant]
     Active Substance: LISINOPRIL
  3. ZOFRAN ODT 4MG [Concomitant]
  4. TEMOZOLOMIDE 140MG [Concomitant]
     Active Substance: TEMOZOLOMIDE
  5. DEXILANT [Concomitant]
     Active Substance: DEXLANSOPRAZOLE
  6. MULTIVITAMIN [Concomitant]
     Active Substance: VITAMINS
  7. CAPECITABINE. [Suspect]
     Active Substance: CAPECITABINE
     Indication: NEUROENDOCRINE TUMOUR
     Dosage: ?          OTHER FREQUENCY:BID X14DAYS, 14OFF;?
     Route: 048
     Dates: start: 20200324
  8. ZOFRAN 8MG [Concomitant]
  9. VITAMIN D 25MCG [Concomitant]
  10. NEURONTIN 100MG [Concomitant]
  11. ACETAMINOPHEN 325MG [Concomitant]

REACTIONS (2)
  - Vomiting [None]
  - Dyspepsia [None]

NARRATIVE: CASE EVENT DATE: 20200331
